FAERS Safety Report 10189122 (Version 1)
Quarter: 2014Q2

REPORT INFORMATION
  Report Type: Spontaneous
  Country: US (occurrence: US)
  Receive Date: 20140522
  Receipt Date: 20140522
  Transmission Date: 20141212
  Serious: Yes (Death)
  Sender: FDA-Public Use
  Company Number: US-JNJFOC-20140514143

PATIENT
  Sex: Female

DRUGS (1)
  1. IMBRUVICA [Suspect]
     Indication: CHRONIC LYMPHOCYTIC LEUKAEMIA
     Route: 065

REACTIONS (5)
  - Cardiac arrest [Fatal]
  - Blood glucose increased [Unknown]
  - Fatigue [Unknown]
  - Asthenia [Unknown]
  - Pain [Unknown]
